FAERS Safety Report 6177907-0 (Version None)
Quarter: 2009Q2

REPORT INFORMATION
  Report Type: 
  Country: None (occurrence: None)
  Receive Date: 20090501
  Receipt Date: 20090501
  Transmission Date: 20091009
  Serious: Yes (Hospitalization)
  Sender: FDA-Public Use
  Company Number: None

PATIENT
  Age: 77 Year
  Sex: Male
  Weight: 118 kg

DRUGS (3)
  1. SIMVASTATIN [Suspect]
     Indication: GOUT
     Dosage: 40 MG AT BEDTIME PO
     Route: 048
     Dates: start: 20040311, end: 20090430
  2. SIMVASTATIN [Suspect]
     Indication: HYPERLIPIDAEMIA
     Dosage: 40 MG AT BEDTIME PO
     Route: 048
     Dates: start: 20040311, end: 20090430
  3. COLCHICINE [Suspect]
     Dosage: 0.6 MG EVERY DAY PO
     Route: 048
     Dates: start: 20000726, end: 20090430

REACTIONS (4)
  - ABASIA [None]
  - FALL [None]
  - PAIN IN EXTREMITY [None]
  - RHABDOMYOLYSIS [None]
